FAERS Safety Report 5825377-1 (Version None)
Quarter: 2008Q3

REPORT INFORMATION
  Report Type: 
  Country: None (occurrence: None)
  Receive Date: 20080725
  Receipt Date: 20080725
  Transmission Date: 20090109
  Serious: Yes (Life-Threatening, Other)
  Sender: FDA-Public Use
  Company Number: None

PATIENT
  Age: 34 Year
  Sex: Male
  Weight: 136.0791 kg

DRUGS (2)
  1. AMBIEN [Suspect]
     Indication: INSOMNIA
     Dosage: ONE AT NIGHT FIRST TIME
     Dates: start: 20080703, end: 20080704
  2. REQUIP [Suspect]
     Indication: TREMOR
     Dosage: 1 IN AM 2 IN PM
     Dates: start: 20080101, end: 20080704

REACTIONS (4)
  - CONFUSIONAL STATE [None]
  - HALLUCINATION [None]
  - ROAD TRAFFIC ACCIDENT [None]
  - SOMNAMBULISM [None]
